FAERS Safety Report 10283023 (Version 2)
Quarter: 2014Q3

REPORT INFORMATION
  Report Type: Spontaneous
  Country: US (occurrence: US)
  Receive Date: 20140708
  Receipt Date: 20140827
  Transmission Date: 20150326
  Serious: Yes (Hospitalization, Other)
  Sender: FDA-Public Use
  Company Number: US-UCBSA-2014004513

PATIENT
  Sex: Female
  Weight: 99.7 kg

DRUGS (22)
  1. KEPPRA [Suspect]
     Active Substance: LEVETIRACETAM
     Indication: EPILEPSY
     Dosage: 1000 MG, 2X/DAY (BID)
     Route: 048
  2. PRAVASTATIN [Concomitant]
     Active Substance: PRAVASTATIN\PRAVASTATIN SODIUM
     Dosage: 40 MG, ONCE DAILY (QD)
     Route: 048
  3. HYDROCODONE [Concomitant]
     Active Substance: HYDROCODONE
     Indication: PAIN
     Dosage: UNK
     Route: 048
  4. RESTASIS [Concomitant]
     Active Substance: CYCLOSPORINE
     Indication: DRY EYE
     Dosage: 1 DROP EACH EYE,0.5%
  5. CYMBALTA [Concomitant]
     Active Substance: DULOXETINE HYDROCHLORIDE
     Dosage: 60 MG, ONCE DAILY (QD)
     Route: 048
  6. DICLOFENAC [Concomitant]
     Active Substance: DICLOFENAC
     Dosage: 75 MG, 2X/DAY (BID)
     Route: 048
  7. ZYPREXA [Concomitant]
     Active Substance: OLANZAPINE
     Dosage: 10 MG, ONCE DAILY (QD)
     Route: 048
  8. ZANAFLEX [Concomitant]
     Active Substance: TIZANIDINE HYDROCHLORIDE
     Indication: PAIN
     Dosage: UNK
     Route: 048
  9. XANAX [Concomitant]
     Active Substance: ALPRAZOLAM
     Indication: ANXIETY
     Dosage: 1 MG, UNK
     Route: 048
  10. VIMPAT [Suspect]
     Active Substance: LACOSAMIDE
     Indication: EPILEPSY
     Dosage: 200MG IN MORNING AND EVENING AND 50MG EACH AT NOON
     Route: 048
  11. TORSEMIDE. [Concomitant]
     Active Substance: TORSEMIDE
     Dosage: 20 MG, ONCE DAILY (QD)
     Route: 048
  12. ESTRADIOL. [Concomitant]
     Active Substance: ESTRADIOL
     Dosage: 0.5 MG, ONCE DAILY (QD)
     Route: 048
  13. PROPANOL [Concomitant]
     Active Substance: PROPRANOLOL HYDROCHLORIDE
     Indication: CONVULSION
     Dosage: UNK
  14. LEVOTHYROXIN [Concomitant]
     Active Substance: LEVOTHYROXINE
     Dosage: 75 MG, ONCE DAILY (QD)
     Route: 048
  15. CHLOR KON [Concomitant]
     Indication: MINERAL SUPPLEMENTATION
     Dosage: 20 ?G, 2X/DAY (BID)
     Route: 048
  16. REQUIP HCL [Concomitant]
     Indication: RESTLESS LEGS SYNDROME
     Dosage: 2 MG, ONCE DAILY (QD)
     Route: 048
  17. LOTEMAX [Concomitant]
     Active Substance: LOTEPREDNOL ETABONATE
     Dosage: UNK
  18. CLONIDINE. [Concomitant]
     Active Substance: CLONIDINE
     Indication: BLOOD PRESSURE
     Dosage: 0.1 MG, 2X/DAY (BID)
     Route: 048
  19. LOPRESSOR [Concomitant]
     Active Substance: METOPROLOL TARTRATE
     Indication: BLOOD PRESSURE
     Dosage: 100 MG, 2X/DAY (BID)
     Route: 048
  20. PROTONIX [Concomitant]
     Active Substance: PANTOPRAZOLE SODIUM
     Indication: GASTROOESOPHAGEAL REFLUX DISEASE
     Dosage: 40 MG, ONCE DAILY (QD)
     Route: 048
  21. VENTOLIN [Concomitant]
     Active Substance: ALBUTEROL SULFATE
     Indication: ASTHMA
     Dosage: UNK
  22. VIMPAT [Suspect]
     Active Substance: LACOSAMIDE
     Indication: OFF LABEL USE

REACTIONS (11)
  - Drug dose omission [Unknown]
  - Off label use [Unknown]
  - Hearing impaired [Not Recovered/Not Resolved]
  - Visual acuity reduced [Not Recovered/Not Resolved]
  - Inappropriate schedule of drug administration [Unknown]
  - Cerebrovascular accident [Recovered/Resolved]
  - Overdose [Unknown]
  - Convulsion [Recovering/Resolving]
  - Petit mal epilepsy [Recovering/Resolving]
  - Amnesia [Not Recovered/Not Resolved]
  - Osteoarthritis [Recovering/Resolving]

NARRATIVE: CASE EVENT DATE: 2013
